FAERS Safety Report 5193215-9 (Version None)
Quarter: 2006Q4

REPORT INFORMATION
  Report Type: 
  Country: None (occurrence: None)
  Receive Date: 20061228
  Receipt Date: 20060710
  Transmission Date: 20070319
  Serious: No
  Sender: FDA-Public Use
  Company Number: US-GLAXOSMITHKLINE-A0611617A

PATIENT
  Age: 71 Year
  Sex: Male

DRUGS (8)
  1. AVODART [Suspect]
     Indication: BENIGN PROSTATIC HYPERPLASIA
     Dosage: .5MG PER DAY
     Route: 048
  2. DIOVAN [Concomitant]
  3. TOPROL-XL [Concomitant]
  4. SPIRONOLACTONE [Concomitant]
  5. NORVASC [Concomitant]
  6. NEXIUM [Concomitant]
  7. FIORICET [Concomitant]
  8. BACLOFEN [Concomitant]

REACTIONS (2)
  - ABDOMINAL DISTENSION [None]
  - MUSCLE SPASMS [None]
